FAERS Safety Report 22598331 (Version 2)
Quarter: 2023Q4

REPORT INFORMATION
  Report Type: Spontaneous
  Country: US (occurrence: US)
  Receive Date: 20230614
  Receipt Date: 20231024
  Transmission Date: 20240110
  Serious: No
  Sender: FDA-Public Use
  Company Number: US-BIOGEN-2023BI01205676

PATIENT
  Sex: Female

DRUGS (6)
  1. TECFIDERA [Suspect]
     Active Substance: DIMETHYL FUMARATE
     Indication: Multiple sclerosis
     Dosage: TAKE 1 CAPSULE BY MOUTH TWICE A DAY
     Route: 050
  2. SINGULAIR [Concomitant]
     Active Substance: MONTELUKAST SODIUM
     Route: 050
  3. SYNTHROID [Concomitant]
     Active Substance: LEVOTHYROXINE SODIUM
     Route: 050
  4. ATENOLOL [Concomitant]
     Active Substance: ATENOLOL
     Route: 050
  5. ALBUTEROL [Concomitant]
     Active Substance: ALBUTEROL
     Route: 050
  6. FUROSEMIDE [Concomitant]
     Active Substance: FUROSEMIDE
     Route: 050

REACTIONS (4)
  - Product dose omission issue [Unknown]
  - Hypersensitivity [Unknown]
  - Abdominal pain upper [Recovered/Resolved]
  - Dyspepsia [Recovered/Resolved]
